FAERS Safety Report 4606007-3 (Version None)
Quarter: 2005Q1

REPORT INFORMATION
  Report Type: 
  Country: None (occurrence: None)
  Receive Date: 20050311
  Receipt Date: 20020214
  Transmission Date: 20050727
  Serious: Yes (Hospitalization)
  Sender: FDA-Public Use
  Company Number: PHFR2002GB00857

PATIENT
  Age: 56 Year
  Sex: Male

DRUGS (4)
  1. CLOZARIL [Suspect]
     Indication: SCHIZOPHRENIA
     Dosage: 100MG MANE, 400MG NOCTE
     Route: 048
  2. CLOZARIL [Suspect]
     Dosage: 500MG MANE, 400MG NOCTE
     Route: 048
  3. CLOZARIL [Suspect]
     Dosage: 350MG/DAY
     Route: 048
     Dates: start: 19990510
  4. AMISULPRIDE [Concomitant]
     Indication: SCHIZOPHRENIA
     Dosage: 400MG/NOCTE
     Route: 048

REACTIONS (14)
  - AGITATION [None]
  - BLOOD PRESSURE INCREASED [None]
  - CONTUSION [None]
  - CONVULSION [None]
  - DIARRHOEA [None]
  - HEAD INJURY [None]
  - HEART RATE INCREASED [None]
  - MALAISE [None]
  - MENTAL DISORDER [None]
  - NEUTROPHIL COUNT INCREASED [None]
  - OVERDOSE [None]
  - ROAD TRAFFIC ACCIDENT [None]
  - TREATMENT NONCOMPLIANCE [None]
  - VOMITING [None]
